FAERS Safety Report 7820446 (Version 3)
Quarter: 2013Q4

REPORT INFORMATION
  Report Type: Spontaneous
  Country: US (occurrence: US)
  Receive Date: 20110221
  Receipt Date: 20131118
  Transmission Date: 20140711
  Serious: Yes (Hospitalization, Other)
  Sender: FDA-Public Use
  Company Number: US-BAYER-2011-015936

PATIENT
  Age: 24 Year
  Sex: Female
  Weight: 54.42 kg

DRUGS (9)
  1. YAZ [Suspect]
     Indication: CONTRACEPTION
     Dosage: UNK
     Dates: start: 20071112, end: 200901
  2. ADVIL [Concomitant]
     Indication: DYSMENORRHOEA
     Dosage: UNK UNK, PRN
     Route: 048
  3. ADVIL [Concomitant]
     Indication: PAIN
  4. ADVIL [Concomitant]
     Indication: HEADACHE
  5. PEPTO BISMOL [Concomitant]
     Indication: ABDOMINAL PAIN UPPER
     Dosage: UNK UNK, PRN
     Route: 048
  6. VICODIN [Concomitant]
     Indication: PAIN
     Dosage: UNK UNK, PRN
     Route: 048
     Dates: start: 20081031
  7. PREVACID [Concomitant]
     Indication: GASTROOESOPHAGEAL REFLUX DISEASE
     Dosage: UNK UNK, PRN
     Route: 048
     Dates: start: 2008
  8. ONE-A-DAY [Concomitant]
     Dosage: UNK UNK, QD
     Route: 048
     Dates: start: 2004
  9. PRILOSEC [Concomitant]
     Route: 048

REACTIONS (4)
  - Cholelithiasis [None]
  - Cholecystitis chronic [None]
  - Pulmonary embolism [None]
  - Pain [None]
